FAERS Safety Report 9909039 (Version 1)
Quarter: 2014Q1

REPORT INFORMATION
  Report Type: Spontaneous
  Country: CA (occurrence: CA)
  Receive Date: 20140219
  Receipt Date: 20140219
  Transmission Date: 20141002
  Serious: Yes (Hospitalization)
  Sender: FDA-Public Use
  Company Number: CA-B.I. PHARMACEUTICALS,INC./RIDGEFIELD-2014-BI-06858CN

PATIENT
  Age: 59 Year
  Sex: Male
  Weight: 101.6 kg

DRUGS (12)
  1. SPIRIVA [Suspect]
     Indication: PRODUCT USED FOR UNKNOWN INDICATION
     Route: 055
  2. ADVAIR 125 [Suspect]
     Indication: PRODUCT USED FOR UNKNOWN INDICATION
     Dosage: 4 ANZ
     Route: 055
  3. FLOMAX CR [Concomitant]
     Route: 048
  4. FLONASE - AEM-SUS NAS [Concomitant]
     Dosage: FORMULATION :METERED-DOSE (PUMP)DOSE PER APPLICATION:50 MCG/MD
     Route: 065
  5. IMDUR [Concomitant]
     Route: 048
  6. MAVIK [Concomitant]
     Route: 048
  7. NITROGLYCERIN [Concomitant]
     Route: 065
  8. NOVO-RANIDINE [Concomitant]
     Route: 048
  9. PLAVIX [Concomitant]
     Route: 048
  10. PRAVASTATIN SODIUM [Concomitant]
     Route: 048
  11. SANDOZ BISOPROLOL [Concomitant]
     Route: 048
  12. SYNTHROID [Concomitant]
     Route: 048

REACTIONS (19)
  - Arthralgia [Unknown]
  - Back pain [Unknown]
  - Bronchitis [Unknown]
  - Constipation [Unknown]
  - Dizziness [Unknown]
  - Dry mouth [Unknown]
  - Dysphonia [Unknown]
  - Ear discomfort [Unknown]
  - Eye infection [Unknown]
  - Chest pain [Unknown]
  - Eye pain [Unknown]
  - Fatigue [Unknown]
  - Genital disorder male [Unknown]
  - Lacrimation increased [Unknown]
  - Pneumonia [Unknown]
  - Rash [Unknown]
  - Skin discolouration [Unknown]
  - Stomatitis [Unknown]
  - Throat irritation [Unknown]
